FAERS Safety Report 4742630-3 (Version None)
Quarter: 2005Q3

REPORT INFORMATION
  Report Type: 
  Country: None (occurrence: None)
  Receive Date: 20050801
  Receipt Date: 20050215
  Transmission Date: 20060218
  Serious: Yes (Hospitalization)
  Sender: FDA-Public Use
  Company Number: 212503

PATIENT
  Sex: Male

DRUGS (4)
  1. RITUXAN [Suspect]
     Indication: MULTIPLE MYELOMA
     Dosage: 375 MG
  2. DOXIL [Concomitant]
  3. DEXAMETHASONE [Concomitant]
  4. VINCRISTINE [Concomitant]

REACTIONS (3)
  - DYSPNOEA [None]
  - LUNG INFILTRATION [None]
  - PYREXIA [None]
